FAERS Safety Report 10406284 (Version 4)
Quarter: 2014Q4

REPORT INFORMATION
  Report Type: Spontaneous
  Country: US (occurrence: None)
  Receive Date: 20140821
  Receipt Date: 20141128
  Transmission Date: 20150528
  Serious: Yes (Hospitalization, Other)
  Sender: FDA-Public Use
  Company Number: 2014-US-007248

PATIENT
  Age: 79 Year
  Sex: Male
  Weight: 83.9 kg

DRUGS (3)
  1. PREDNISONE. [Suspect]
     Active Substance: PREDNISONE
     Indication: AUTOIMMUNE DISORDER
     Route: 048
  2. COUMADIN [Concomitant]
     Active Substance: WARFARIN SODIUM
  3. XYREM [Suspect]
     Active Substance: SODIUM OXYBATE
     Indication: NARCOLEPSY
     Dosage: DOSE ADJUSTMENTS, ORAL
     Route: 048
     Dates: start: 200901

REACTIONS (4)
  - Gait disturbance [None]
  - Back pain [None]
  - Back injury [None]
  - Spinal compression fracture [None]

NARRATIVE: CASE EVENT DATE: 20140305
